FAERS Safety Report 7069130-2 (Version None)
Quarter: 2010Q4

REPORT INFORMATION
  Report Type: 
  Country: None (occurrence: None)
  Receive Date: 20101028
  Receipt Date: 20101021
  Transmission Date: 20110411
  Serious: Yes (Other)
  Sender: FDA-Public Use
  Company Number: A0888046A

PATIENT
  Age: 44 Year
  Sex: Female

DRUGS (3)
  1. ADVAIR DISKUS 100/50 [Suspect]
     Route: 055
     Dates: start: 20091101, end: 20091201
  2. METOPROLOL [Concomitant]
  3. AVALIDE [Concomitant]

REACTIONS (3)
  - BEDRIDDEN [None]
  - FEELING ABNORMAL [None]
  - VISUAL ACUITY REDUCED [None]
